FAERS Safety Report 7258210 (Version 2)
Quarter: 2017Q4

REPORT INFORMATION
  Report Type: Report from Study
  Country: US (occurrence: US)
  Receive Date: 20100127
  Receipt Date: 20171114
  Transmission Date: 20180321
  Serious: Yes (Disabling, Other)
  Sender: FDA-Public Use
  Company Number: US-B.I. PHARMACEUTICALS,INC./RIDGEFIELD-2010-DE-00145GD

PATIENT
  Age: 67 Year
  Sex: Female

DRUGS (10)
  1. PRAMIPEXOLE. [Suspect]
     Active Substance: PRAMIPEXOLE
     Route: 065
  2. PRAMIPEXOLE. [Suspect]
     Active Substance: PRAMIPEXOLE
     Route: 065
  3. LEVODOPA [Concomitant]
     Active Substance: LEVODOPA
     Route: 065
  4. ENTACAPONE. [Concomitant]
     Active Substance: ENTACAPONE
     Indication: PARKINSON^S DISEASE
     Route: 065
  5. SELEGILINE HYDROCHLORIDE. [Concomitant]
     Active Substance: SELEGILINE HYDROCHLORIDE
     Indication: PARKINSON^S DISEASE
     Route: 065
  6. LEVODOPA [Concomitant]
     Active Substance: LEVODOPA
     Dosage: SELF-MEDICATED WITH SUPRATHERAPEUTIC LEVODOPA
     Route: 065
  7. PRAMIPEXOLE. [Suspect]
     Active Substance: PRAMIPEXOLE
     Indication: PARKINSON^S DISEASE
     Route: 065
  8. LEVODOPA [Concomitant]
     Active Substance: LEVODOPA
     Indication: PARKINSON^S DISEASE
     Route: 065
  9. MIRTAZAPINE. [Concomitant]
     Active Substance: MIRTAZAPINE
     Indication: PARKINSON^S DISEASE
     Route: 065
  10. LEVODOPA [Concomitant]
     Active Substance: LEVODOPA
     Dosage: DOSING FREQUENCY WAS INCREASED
     Route: 065

REACTIONS (20)
  - Hallucination, visual [Unknown]
  - Eating disorder [Not Recovered/Not Resolved]
  - Drug therapy [Unknown]
  - Stereotypy [Unknown]
  - Malaise [Unknown]
  - Agoraphobia [Recovered/Resolved]
  - Marital problem [Unknown]
  - Panic attack [Recovered/Resolved]
  - Compulsive shopping [Not Recovered/Not Resolved]
  - Anxiety [Unknown]
  - Dyskinesia [Unknown]
  - Chorea [Unknown]
  - Early retirement [Unknown]
  - Feeling abnormal [Unknown]
  - Dystonia [Unknown]
  - Hypersexuality [Not Recovered/Not Resolved]
  - Impulse-control disorder [Not Recovered/Not Resolved]
  - Pain [Unknown]
  - Drug withdrawal syndrome [Not Recovered/Not Resolved]
  - Dysphoria [Unknown]
